FAERS Safety Report 12903141 (Version 1)
Quarter: 2016Q4

REPORT INFORMATION
  Report Type: Spontaneous
  Country: US (occurrence: US)
  Receive Date: 20161031
  Receipt Date: 20161031
  Transmission Date: 20170207
  Serious: Yes (Hospitalization)
  Sender: FDA-Public Use
  Company Number: None

PATIENT
  Age: 77 Year
  Sex: Male
  Weight: 64.5 kg

DRUGS (1)
  1. PREDNISONE. [Suspect]
     Active Substance: PREDNISONE
     Indication: CHRONIC OBSTRUCTIVE PULMONARY DISEASE
     Dosage: 10 DECREASING TO 5 MG
     Route: 048
     Dates: start: 20160713, end: 20160812

REACTIONS (7)
  - Gastric ulcer [None]
  - Asthenia [None]
  - Vomiting [None]
  - Nausea [None]
  - Haemoglobin decreased [None]
  - Dyspnoea [None]
  - Gastric haemorrhage [None]

NARRATIVE: CASE EVENT DATE: 20160826
